FAERS Safety Report 11229178 (Version 3)
Quarter: 2015Q3

REPORT INFORMATION
  Report Type: Spontaneous
  Country: JP (occurrence: JP)
  Receive Date: 20150630
  Receipt Date: 20150818
  Transmission Date: 20151125
  Serious: Yes (Hospitalization, Other)
  Sender: FDA-Public Use
  Company Number: JP-PFIZER INC-2015214103

PATIENT
  Age: 82 Year
  Sex: Male
  Weight: 46 kg

DRUGS (10)
  1. CELECOX [Suspect]
     Active Substance: CELECOXIB
     Indication: PYREXIA
     Dosage: 100 MG, 2X/DAY
     Route: 048
     Dates: start: 20150130, end: 20150511
  2. HANP [Concomitant]
     Active Substance: CARPERITIDE
     Dosage: 1000 ?G, UNK
     Dates: start: 20150504, end: 20150507
  3. TAKEPRON [Suspect]
     Active Substance: LANSOPRAZOLE
     Dosage: 15 MG, 1X/DAY
     Route: 048
     Dates: start: 20150213, end: 20150511
  4. FUROSEMIDE. [Concomitant]
     Active Substance: FUROSEMIDE
     Dosage: 20 MG, UNK
     Dates: start: 20150504, end: 20150507
  5. NOVOLIN [Concomitant]
     Active Substance: INSULIN HUMAN
     Dosage: UNK
  6. LANSOPRAZOLE. [Suspect]
     Active Substance: LANSOPRAZOLE
     Dosage: 15 MG, 1X/DAY
     Route: 048
     Dates: start: 20150130, end: 20150511
  7. SELARA [Concomitant]
     Active Substance: EPLERENONE
     Dosage: 25 MG, UNK
     Dates: start: 20150505
  8. SAMSCA [Concomitant]
     Active Substance: TOLVAPTAN
     Dosage: 7.5 MG, UNK
     Dates: start: 20150508, end: 20150512
  9. DIART [Concomitant]
     Active Substance: AZOSEMIDE
     Dosage: 30 MG, UNK
     Dates: start: 20150505
  10. SAMSCA [Concomitant]
     Active Substance: TOLVAPTAN
     Dosage: 15 MG, UNK
     Dates: start: 20150504, end: 20150507

REACTIONS (4)
  - Cardiac failure chronic [Unknown]
  - Lung disorder [Recovering/Resolving]
  - Intentional product misuse [Unknown]
  - Condition aggravated [Unknown]

NARRATIVE: CASE EVENT DATE: 2015
